FAERS Safety Report 6011272-4 (Version None)
Quarter: 2008Q4

REPORT INFORMATION
  Report Type: 
  Country: None (occurrence: None)
  Receive Date: 20081218
  Receipt Date: 20081208
  Transmission Date: 20090506
  Serious: Yes (Death)
  Sender: FDA-Public Use
  Company Number: PHHY2008JP31192

PATIENT
  Age: 60 Year
  Sex: Female

DRUGS (1)
  1. SANDOSTATIN LAR [Suspect]
     Indication: ACROMEGALY
     Dosage: 30MG (QMO)
     Route: 030
     Dates: end: 20080601

REACTIONS (1)
  - SUDDEN DEATH [None]
